FAERS Safety Report 6825252-X (Version None)
Quarter: 2010Q3

REPORT INFORMATION
  Report Type: 
  Country: None (occurrence: None)
  Receive Date: 20100708
  Receipt Date: 20061221
  Transmission Date: 20110219
  Serious: No
  Sender: FDA-Public Use
  Company Number: US-PFIZER INC-2007001112

PATIENT
  Sex: Female
  Weight: 60.33 kg

DRUGS (7)
  1. CHANTIX [Suspect]
     Indication: SMOKING CESSATION THERAPY
     Dates: start: 20061209
  2. SPIRIVA [Concomitant]
     Indication: ASTHMA
  3. SPIRIVA [Concomitant]
     Indication: EMPHYSEMA
  4. ALBUTEROL [Concomitant]
     Indication: ASTHMA
  5. ALBUTEROL [Concomitant]
     Indication: EMPHYSEMA
  6. PLAVIX [Concomitant]
  7. QUINAPRIL [Concomitant]
     Indication: HYPERTENSION

REACTIONS (1)
  - NAUSEA [None]
